FAERS Safety Report 13522032 (Version 1)
Quarter: 2017Q2

REPORT INFORMATION
  Report Type: Spontaneous
  Country: CH (occurrence: CH)
  Receive Date: 20170508
  Receipt Date: 20170508
  Transmission Date: 20170830
  Serious: Yes (Other)
  Sender: FDA-Public Use
  Company Number: CH-B.I. PHARMACEUTICALS,INC./RIDGEFIELD-2017-BI-025392

PATIENT
  Sex: Female

DRUGS (1)
  1. GILOTRIF [Suspect]
     Active Substance: AFATINIB
     Indication: PRODUCT USED FOR UNKNOWN INDICATION
     Route: 065
     Dates: start: 201608

REACTIONS (4)
  - Malignant neoplasm progression [Unknown]
  - Epistaxis [Unknown]
  - Diarrhoea [Unknown]
  - Mucosal toxicity [Unknown]
